FAERS Safety Report 6026099-7 (Version None)
Quarter: 2009Q1

REPORT INFORMATION
  Report Type: 
  Country: None (occurrence: None)
  Receive Date: 20090102
  Receipt Date: 20081229
  Transmission Date: 20090719
  Serious: Yes (Other)
  Sender: FDA-Public Use
  Company Number: GB-TEVA-183154ISR

PATIENT

DRUGS (1)
  1. LAMOTRIGINE [Suspect]
     Route: 064

REACTIONS (1)
  - ASPERGER'S DISORDER [None]
